FAERS Safety Report 25744945 (Version 1)
Quarter: 2025Q3

REPORT INFORMATION
  Report Type: Report from Study
  Country: US (occurrence: US)
  Receive Date: 20250901
  Receipt Date: 20250901
  Transmission Date: 20251021
  Serious: No
  Sender: DECIPHERA PHARMACEUTICALS
  Company Number: US-DECIPHERA PHARMACEUTICALS LLC-2025US001013

PATIENT
  Age: 52 Year
  Sex: Female

DRUGS (2)
  1. ROMVIMZA [Suspect]
     Active Substance: VIMSELTINIB
     Indication: Giant cell tumour of tendon sheath
     Dosage: 30 MILLIGRAM, TWICE WEEKLY, (EVERY 72 HOURS)
     Dates: start: 20250425, end: 20250804
  2. ROMVIMZA [Suspect]
     Active Substance: VIMSELTINIB
     Dosage: 30 MILLIGRAM, TWICE WEEKLY, (EVERY 72 HOURS)
     Dates: start: 20250811

REACTIONS (2)
  - Hypersensitivity [Recovered/Resolved]
  - Pruritus [Recovered/Resolved]

NARRATIVE: CASE EVENT DATE: 20250101
